FAERS Safety Report 4846645-6 (Version None)
Quarter: 2005Q4

REPORT INFORMATION
  Report Type: 
  Country: None (occurrence: None)
  Receive Date: 20051206
  Receipt Date: 20051125
  Transmission Date: 20060501
  Serious: Yes (Disabling)
  Sender: FDA-Public Use
  Company Number: PHNR2005AU01660

PATIENT
  Sex: Male

DRUGS (2)
  1. AREDIA [Suspect]
     Indication: MULTIPLE MYELOMA
     Dosage: 1 DF, MONTHLY
     Dates: end: 20030315
  2. ZOMETA [Suspect]
     Indication: MULTIPLE MYELOMA
     Dates: start: 20030215

REACTIONS (9)
  - ABSCESS DRAINAGE [None]
  - DENTAL OPERATION [None]
  - JAW FRACTURE [None]
  - OSTEONECROSIS [None]
  - PAIN IN JAW [None]
  - TOOTH ABSCESS [None]
  - TOOTH IMPACTED [None]
  - TOOTHACHE [None]
  - WISDOM TEETH REMOVAL [None]
